FAERS Safety Report 6623012-6 (Version None)
Quarter: 2010Q1

REPORT INFORMATION
  Report Type: 
  Country: None (occurrence: None)
  Receive Date: 20100310
  Receipt Date: 20100107
  Transmission Date: 20100710
  Serious: No
  Sender: FDA-Public Use
  Company Number: US-BIOGENIDEC-2010BI000878

PATIENT
  Age: 50 Year
  Sex: Female

DRUGS (1)
  1. AVONEX [Suspect]
     Indication: MULTIPLE SCLEROSIS
     Route: 030
     Dates: start: 20090919

REACTIONS (6)
  - ANXIETY [None]
  - CONFUSIONAL STATE [None]
  - FRUSTRATION [None]
  - NERVOUS SYSTEM DISORDER [None]
  - PAIN [None]
  - VISUAL IMPAIRMENT [None]
